FAERS Safety Report 6368572-8 (Version None)
Quarter: 2009Q3

REPORT INFORMATION
  Report Type: 
  Country: None (occurrence: None)
  Receive Date: 20090922
  Receipt Date: 20090206
  Transmission Date: 20100115
  Serious: No
  Sender: FDA-Public Use
  Company Number: US-BRISTOL-MYERS SQUIBB COMPANY-14496285

PATIENT
  Age: 79 Year
  Sex: Female

DRUGS (1)
  1. BUSPIRONE HCL [Suspect]
     Indication: ANXIETY
     Dosage: 1 DOSAGE FORM = 1/3TABLET

REACTIONS (2)
  - MEDICATION ERROR [None]
  - NAUSEA [None]
